FAERS Safety Report 6219302-1 (Version None)
Quarter: 2009Q2

REPORT INFORMATION
  Report Type: 
  Country: None (occurrence: None)
  Receive Date: 20090609
  Receipt Date: 20090603
  Transmission Date: 20091009
  Serious: Yes (Other)
  Sender: FDA-Public Use
  Company Number: JP-ASTRAZENECA-2009SE02074

PATIENT
  Age: 36 Year
  Sex: Female
  Weight: 57 kg

DRUGS (5)
  1. ZOLADEX [Suspect]
     Indication: ENDOMETRIOSIS
     Route: 058
     Dates: start: 20090213
  2. ADAPTINOL [Concomitant]
     Indication: RETINAL DEPIGMENTATION
     Dosage: DOSE UNKNOWN
     Route: 048
  3. VITAMEDIN [Concomitant]
     Indication: RETINAL DEPIGMENTATION
     Dosage: DOSE UNKNOWN
     Route: 048
  4. CARNACULIN [Concomitant]
     Indication: RETINAL DEPIGMENTATION
     Dosage: DOSE UNKNOWN
     Route: 048
  5. ISALON [Concomitant]
     Indication: RETINAL DEPIGMENTATION
     Dosage: DOSE UNKNOWN
     Route: 048

REACTIONS (1)
  - CARBOHYDRATE ANTIGEN 19-9 INCREASED [None]
